FAERS Safety Report 5710649-1 (Version None)
Quarter: 2008Q2

REPORT INFORMATION
  Report Type: 
  Country: None (occurrence: None)
  Receive Date: 20080415
  Receipt Date: 20080401
  Transmission Date: 20081010
  Serious: Yes (Death)
  Sender: FDA-Public Use
  Company Number: 2008028848

PATIENT
  Age: 56 Year
  Sex: Male

DRUGS (1)
  1. FRAGMIN [Suspect]
     Indication: PROPHYLAXIS
     Dosage: 5000 I.U. (5000 I.U., 1 IN 1 D),SUBCUTANEOUS
     Route: 058
     Dates: start: 20080227, end: 20080310

REACTIONS (1)
  - PULMONARY EMBOLISM [None]
